FAERS Safety Report 8510141-5 (Version None)
Quarter: 2012Q3

REPORT INFORMATION
  Report Type: 
  Country: None (occurrence: None)
  Receive Date: 20120713
  Receipt Date: 20120703
  Transmission Date: 20120928
  Serious: Yes (Other)
  Sender: FDA-Public Use
  Company Number: CA-FRI-1000037010

PATIENT
  Age: 21 Year
  Sex: Male
  Weight: 120 kg

DRUGS (1)
  1. ESCITALOPRAM [Suspect]
     Dosage: 10 MG
     Route: 048

REACTIONS (6)
  - SUICIDAL IDEATION [None]
  - LIBIDO DECREASED [None]
  - PREMATURE EJACULATION [None]
  - ERECTILE DYSFUNCTION [None]
  - DISTURBANCE IN SEXUAL AROUSAL [None]
  - ORGASMIC SENSATION DECREASED [None]
